FAERS Safety Report 21372846 (Version 5)
Quarter: 2022Q4

REPORT INFORMATION
  Report Type: Report from Study
  Country: GB (occurrence: GB)
  Receive Date: 20220924
  Receipt Date: 20221011
  Transmission Date: 20230113
  Serious: Yes (Other)
  Sender: FDA-Public Use
  Company Number: GB-ABBVIE-4129219

PATIENT
  Age: 78 Year
  Sex: Female

DRUGS (7)
  1. CARBIDOPA\LEVODOPA [Suspect]
     Active Substance: CARBIDOPA\LEVODOPA
     Indication: Parkinson^s disease
     Dosage: DUODOPA 20MGS/5MGS, MD: 6.5, CR: 2.5, ED: 1.4
     Route: 050
  2. CARBIDOPA\LEVODOPA [Suspect]
     Active Substance: CARBIDOPA\LEVODOPA
     Dosage: MD:6.5; CR: 2.0 AND ED:1.4
     Route: 050
  3. CO CARELDOPA [Concomitant]
     Indication: Parkinson^s disease
     Dosage: 25/100MG
     Route: 048
  4. CO CARELDOPA [Concomitant]
     Indication: Parkinson^s disease
     Dosage: 25/100MG 23:00
     Route: 048
  5. ONGENTYS [Concomitant]
     Active Substance: OPICAPONE
     Indication: Parkinson^s disease
     Dosage: 22:00
     Route: 048
  6. QUETIAPINE [Concomitant]
     Active Substance: QUETIAPINE
     Indication: Psychotic disorder
     Route: 048
  7. FYBOGEL [Concomitant]
     Active Substance: HERBALS\PLANTAGO OVATA SEED
     Indication: Laxative supportive care
     Dosage: SACHET
     Route: 048

REACTIONS (10)
  - Knee arthroplasty [Not Recovered/Not Resolved]
  - Hypophagia [Not Recovered/Not Resolved]
  - Parkinson^s disease psychosis [Unknown]
  - Anal prolapse [Not Recovered/Not Resolved]
  - Hallucination [Not Recovered/Not Resolved]
  - Device connection issue [Not Recovered/Not Resolved]
  - Schizophrenia [Not Recovered/Not Resolved]
  - Weight decreased [Not Recovered/Not Resolved]
  - Confusional state [Not Recovered/Not Resolved]
  - Pain [Not Recovered/Not Resolved]

NARRATIVE: CASE EVENT DATE: 20220101
